FAERS Safety Report 8071186-5 (Version None)
Quarter: 2012Q1

REPORT INFORMATION
  Report Type: 
  Country: None (occurrence: None)
  Receive Date: 20120125
  Receipt Date: 20120112
  Transmission Date: 20120608
  Serious: Yes (Hospitalization)
  Sender: FDA-Public Use
  Company Number: PHHY2011US53543

PATIENT
  Sex: Female
  Weight: 74.3 kg

DRUGS (5)
  1. COMPAZINE [Concomitant]
     Indication: NAUSEA
     Dosage: 10 MG, UNK
     Route: 048
     Dates: start: 20110320
  2. ZOLPIDEM TARTRATE [Concomitant]
     Indication: INSOMNIA
     Dosage: 10 MG, PRN
     Route: 048
  3. GLEEVEC [Suspect]
     Indication: DERMATOFIBROSARCOMA
     Dosage: 400 MG, UNK
     Route: 048
     Dates: start: 20110320, end: 20110508
  4. GLEEVEC [Suspect]
     Dosage: 400 MG, DAILY
     Route: 048
     Dates: start: 20110518, end: 20110926
  5. ONDANSETRON HCL [Concomitant]
     Indication: NAUSEA
     Route: 048
     Dates: start: 20110320

REACTIONS (30)
  - HEPATIC NECROSIS [None]
  - HEPATIC FUNCTION ABNORMAL [None]
  - FATIGUE [None]
  - PROTEIN TOTAL DECREASED [None]
  - DIARRHOEA [None]
  - OEDEMA PERIPHERAL [None]
  - ANXIETY [None]
  - CHROMATURIA [None]
  - COUGH [None]
  - BLOOD CALCIUM DECREASED [None]
  - CONSTIPATION [None]
  - RASH MACULO-PAPULAR [None]
  - DIZZINESS [None]
  - WEIGHT INCREASED [None]
  - RASH ERYTHEMATOUS [None]
  - BLOOD PRESSURE DECREASED [None]
  - ABDOMINAL PAIN UPPER [None]
  - BLOOD GLUCOSE INCREASED [None]
  - JAUNDICE [None]
  - NAUSEA [None]
  - ABDOMINAL DISCOMFORT [None]
  - FAECES DISCOLOURED [None]
  - VOMITING [None]
  - LIVER FUNCTION TEST ABNORMAL [None]
  - HEPATITIS [None]
  - DERMATITIS ACNEIFORM [None]
  - GALLBLADDER DISORDER [None]
  - HYPOKALAEMIA [None]
  - UPPER RESPIRATORY TRACT INFECTION [None]
  - OEDEMA [None]
